FAERS Safety Report 14966173 (Version 1)
Quarter: 2018Q2

REPORT INFORMATION
  Report Type: Spontaneous
  Country: JP (occurrence: JP)
  Receive Date: 20180603
  Receipt Date: 20180603
  Transmission Date: 20180711
  Serious: Yes (Hospitalization, Other)
  Sender: FDA-Public Use
  Company Number: PHJP2018JP011720

PATIENT
  Age: 71 Year
  Sex: Female
  Weight: 53.9 kg

DRUGS (18)
  1. IMATINIB [Suspect]
     Active Substance: IMATINIB
     Dosage: 500 MG, UNK
     Route: 048
  2. DOXORUBICIN [Concomitant]
     Active Substance: DOXORUBICIN
     Indication: PRODUCT USED FOR UNKNOWN INDICATION
     Dosage: UNK
     Route: 065
  3. IMATINIB [Suspect]
     Active Substance: IMATINIB
     Indication: ACUTE LYMPHOCYTIC LEUKAEMIA
     Dosage: 200 MG, UNK
     Route: 048
  4. PREDNISOLONE. [Concomitant]
     Active Substance: PREDNISOLONE
     Dosage: UNK
     Route: 065
  5. CYCLOPHOSPHAMIDE. [Concomitant]
     Active Substance: CYCLOPHOSPHAMIDE
     Indication: PRODUCT USED FOR UNKNOWN INDICATION
     Dosage: UNK
     Route: 065
  6. VINCRISTINE [Concomitant]
     Active Substance: VINCRISTINE
     Indication: PRODUCT USED FOR UNKNOWN INDICATION
     Dosage: 1.4 MG, UNK
     Route: 065
  7. PREDNISOLONE. [Concomitant]
     Active Substance: PREDNISOLONE
     Indication: PRODUCT USED FOR UNKNOWN INDICATION
     Dosage: UNK
     Route: 065
  8. PIRARUBICIN [Concomitant]
     Active Substance: PIRARUBICIN
     Dosage: 55 MG, UNK
     Route: 065
  9. METHOTREXATE. [Concomitant]
     Active Substance: METHOTREXATE
     Indication: PRODUCT USED FOR UNKNOWN INDICATION
     Dosage: UNK
     Route: 065
  10. CYTARABINE. [Concomitant]
     Active Substance: CYTARABINE
     Indication: PRODUCT USED FOR UNKNOWN INDICATION
     Dosage: UNK
     Route: 065
  11. PIRARUBICIN [Concomitant]
     Active Substance: PIRARUBICIN
     Indication: PRODUCT USED FOR UNKNOWN INDICATION
     Dosage: 55 MG, UNK
     Route: 065
  12. VINCRISTINE [Concomitant]
     Active Substance: VINCRISTINE
     Dosage: 1.4 MG, UNK
     Route: 065
  13. VINCRISTINE [Concomitant]
     Active Substance: VINCRISTINE
     Dosage: 1.4 MG, UNK
     Route: 065
  14. IMATINIB [Suspect]
     Active Substance: IMATINIB
     Dosage: 600 MG, UNK
     Route: 048
  15. IMATINIB [Suspect]
     Active Substance: IMATINIB
     Dosage: 400 MG, UNK
     Route: 048
  16. IMATINIB [Suspect]
     Active Substance: IMATINIB
     Dosage: 500 MG, UNK
     Route: 048
  17. VINCRISTINE [Concomitant]
     Active Substance: VINCRISTINE
     Dosage: 1.4 MG, UNK
     Route: 065
  18. DEXART [Concomitant]
     Active Substance: DEXAMETHASONE SODIUM PHOSPHATE
     Indication: PRODUCT USED FOR UNKNOWN INDICATION
     Dosage: UNK
     Route: 065

REACTIONS (13)
  - Acute lymphocytic leukaemia recurrent [Unknown]
  - Nausea [Unknown]
  - Oxygen saturation decreased [Unknown]
  - Bacterial sepsis [Unknown]
  - Leukopenia [Unknown]
  - Anaemia [Unknown]
  - Pleural effusion [Recovered/Resolved]
  - Vomiting [Recovering/Resolving]
  - Diarrhoea [Recovering/Resolving]
  - Decreased activity [Unknown]
  - Platelet count decreased [Unknown]
  - Drug resistance [Unknown]
  - Cytogenetic analysis abnormal [Unknown]
